FAERS Safety Report 18376504 (Version 4)
Quarter: 2020Q4

REPORT INFORMATION
  Report Type: Report from Study
  Country: CA (occurrence: CA)
  Receive Date: 20201013
  Receipt Date: 20201207
  Transmission Date: 20210114
  Serious: Yes (Other)
  Sender: FDA-Public Use
  Company Number: CA-JNJFOC-20200812149

PATIENT
  Age: 31 Year
  Sex: Male
  Weight: 84.9 kg

DRUGS (3)
  1. STELARA [Suspect]
     Active Substance: USTEKINUMAB
     Indication: CROHN^S DISEASE
     Dosage: A 520 MG IV STAT DOSE REQUESTED AND THEN RESUMPTION OF 90MG Q4 WEEKS
     Route: 058
     Dates: start: 20190604
  2. STELARA [Suspect]
     Active Substance: USTEKINUMAB
     Route: 058
  3. STELARA [Suspect]
     Active Substance: USTEKINUMAB
     Route: 058

REACTIONS (10)
  - Decreased appetite [Unknown]
  - Anxiety [Not Recovered/Not Resolved]
  - Stress [Not Recovered/Not Resolved]
  - Vasectomy [Recovered/Resolved]
  - Crohn^s disease [Not Recovered/Not Resolved]
  - Constipation [Not Recovered/Not Resolved]
  - Weight decreased [Not Recovered/Not Resolved]
  - Poor quality sleep [Unknown]
  - Abdominal pain [Not Recovered/Not Resolved]
  - Anorectal discomfort [Unknown]

NARRATIVE: CASE EVENT DATE: 20200717
